FAERS Safety Report 6128131-9 (Version None)
Quarter: 2009Q1

REPORT INFORMATION
  Report Type: 
  Country: None (occurrence: None)
  Receive Date: 20090323
  Receipt Date: 20090311
  Transmission Date: 20090719
  Serious: Yes (Hospitalization)
  Sender: FDA-Public Use
  Company Number: US-ROCHE-621439

PATIENT
  Sex: Female
  Weight: 42.6 kg

DRUGS (1)
  1. CAPECITABINE [Suspect]
     Indication: GALLBLADDER CANCER
     Dosage: DOSE: 500 MG AM AND 500 MG PM
     Route: 048
     Dates: start: 20090206

REACTIONS (2)
  - DISEASE PROGRESSION [None]
  - PAIN [None]
